FAERS Safety Report 6230090-5 (Version None)
Quarter: 2009Q2

REPORT INFORMATION
  Report Type: 
  Country: None (occurrence: None)
  Receive Date: 20090615
  Receipt Date: 20090608
  Transmission Date: 20091009
  Serious: Yes (Other)
  Sender: FDA-Public Use
  Company Number: US-GENENTECH-284252

PATIENT
  Age: 73 Year
  Sex: Female

DRUGS (5)
  1. AVASTIN [Suspect]
     Indication: DIABETIC RETINOPATHY
     Dosage: UNK, OU, INTRAVITREAL
     Route: 031
  2. AVASTIN [Suspect]
     Dosage: UNK, OU, INTRAVITREAL
     Route: 031
     Dates: start: 20090107, end: 20090107
  3. AVASTIN [Suspect]
     Dosage: UNK, OU, INTRAVITREAL
     Route: 031
     Dates: start: 20090127, end: 20090127
  4. ANTIHYPERTENSIVE NOS [Concomitant]
     Indication: BLOOD PRESSURE
     Dosage: UNK
  5. LASER THERAPY EYES [Concomitant]
     Indication: DRUG USE FOR UNKNOWN INDICATION
     Dosage: UNK
     Dates: start: 20090113

REACTIONS (3)
  - BLINDNESS [None]
  - CATARACT [None]
  - EYE HAEMORRHAGE [None]
